FAERS Safety Report 23096117 (Version 1)
Quarter: 2023Q4

REPORT INFORMATION
  Report Type: Spontaneous
  Country: US (occurrence: None)
  Receive Date: 20231019
  Receipt Date: 20231019
  Transmission Date: 20240109
  Serious: Yes (Hospitalization)
  Sender: FDA-Public Use
  Company Number: None

PATIENT
  Age: 63 Year
  Sex: Male
  Weight: 111 kg

DRUGS (1)
  1. DABIGATRAN ETEXILATE [Suspect]
     Active Substance: DABIGATRAN ETEXILATE
     Dosage: FREQUENCY : TWICE A DAY;?
     Route: 048
     Dates: start: 20230120, end: 20230305

REACTIONS (5)
  - Haemorrhage [None]
  - Dyspnoea exertional [None]
  - Haematochezia [None]
  - Intestinal mass [None]
  - Red blood cell transfusion [None]

NARRATIVE: CASE EVENT DATE: 20230306
